FAERS Safety Report 24713766 (Version 1)
Quarter: 2024Q4

REPORT INFORMATION
  Report Type: Spontaneous
  Country: US (occurrence: US)
  Receive Date: 20241209
  Receipt Date: 20241209
  Transmission Date: 20250115
  Serious: No
  Sender: REGENERON
  Company Number: US-REGENERON PHARMACEUTICALS, INC.-2024-056323

PATIENT
  Sex: Female

DRUGS (5)
  1. EYLEA [Suspect]
     Active Substance: AFLIBERCEPT
     Indication: Neovascular age-related macular degeneration
     Dosage: 2 MG, EVERY 4 WEEKS, RIGHT EYE (FORMULATION: VIAL, STRENGTH: 2MG/0.05ML)
     Dates: start: 20230713, end: 20230713
  2. EYLEA [Suspect]
     Active Substance: AFLIBERCEPT
     Indication: Neovascularisation
     Dosage: 2 MG, EVERY 4 WEEKS, RIGHT EYE (FORMULATION: VIAL, STRENGTH: 2MG/0.05ML)
     Dates: start: 20231103, end: 20231103
  3. EYLEA [Suspect]
     Active Substance: AFLIBERCEPT
     Dosage: 2 MG, EVERY 4 WEEKS, RIGHT EYE (FORMULATION: VIAL, STRENGTH: 2MG/0.05ML)
     Dates: start: 20240223, end: 20240223
  4. ATORVASTATIN [Concomitant]
     Active Substance: ATORVASTATIN
     Indication: Product used for unknown indication
  5. KETOROLAC [Concomitant]
     Active Substance: KETOROLAC TROMETHAMINE
     Indication: Product used for unknown indication

REACTIONS (2)
  - Device defective [Not Recovered/Not Resolved]
  - Product dose omission issue [Not Recovered/Not Resolved]

NARRATIVE: CASE EVENT DATE: 20240405
